FAERS Safety Report 4765835-4 (Version None)
Quarter: 2005Q3

REPORT INFORMATION
  Report Type: 
  Country: None (occurrence: None)
  Receive Date: 20050906
  Receipt Date: 20050829
  Transmission Date: 20060218
  Serious: Yes (Death, Hospitalization)
  Sender: FDA-Public Use
  Company Number: HQWYE232802SEP05

PATIENT
  Age: 26 Year
  Sex: Female

DRUGS (8)
  1. RAPAMUNE [Suspect]
     Indication: IMMUNOSUPPRESSANT DRUG THERAPY
     Dosage: 1 MG 1X PER 1 DAY, ORAL
     Route: 048
     Dates: start: 20030604, end: 20031103
  2. RAPAMUNE [Suspect]
     Indication: PROPHYLAXIS AGAINST TRANSPLANT REJECTION
     Dosage: 1 MG 1X PER 1 DAY, ORAL
     Route: 048
     Dates: start: 20030604, end: 20031103
  3. TACROLIMUS (TACROLIMUS, ) [Suspect]
     Indication: IMMUNOSUPPRESSANT DRUG THERAPY
     Dosage: 14.5 MG 1X PER 1DAY, ORAL
     Route: 048
     Dates: start: 20030604
  4. TACROLIMUS (TACROLIMUS, ) [Suspect]
     Indication: PROPHYLAXIS AGAINST TRANSPLANT REJECTION
     Dosage: 14.5 MG 1X PER 1DAY, ORAL
     Route: 048
     Dates: start: 20030604
  5. PREDNISOLONE [Concomitant]
  6. SULFAMETHOXAZOLE + TRIMETHOPRIM [Concomitant]
  7. DILTIAZEM [Concomitant]
  8. NADROPARIN CALCIUM (HEPARIN-FRACTION, CALCIUM SALT) [Concomitant]

REACTIONS (12)
  - ANASTOMOTIC COMPLICATION [None]
  - EPSTEIN-BARR VIRUS INFECTION [None]
  - GASTROENTERITIS [None]
  - GENERAL PHYSICAL CONDITION ABNORMAL [None]
  - HEPATIC HAEMATOMA [None]
  - HEPATIC HAEMORRHAGE [None]
  - MULTI-ORGAN FAILURE [None]
  - NON-HODGKIN'S LYMPHOMA [None]
  - PERITONITIS [None]
  - SEPSIS [None]
  - SMALL INTESTINAL HAEMORRHAGE [None]
  - SMALL INTESTINAL PERFORATION [None]
